FAERS Safety Report 16283225 (Version 1)
Quarter: 2019Q2

REPORT INFORMATION
  Report Type: Spontaneous
  Country: PL (occurrence: PL)
  Receive Date: 20190507
  Receipt Date: 20190507
  Transmission Date: 20190711
  Serious: Yes (Hospitalization)
  Sender: FDA-Public Use
  Company Number: PL-TEVA-2019-PL-1045421

PATIENT
  Age: 24 Year
  Sex: Female
  Weight: 60 kg

DRUGS (1)
  1. BACTRAZOL [Suspect]
     Active Substance: AZITHROMYCIN
     Indication: SALPINGO-OOPHORITIS
     Route: 048
     Dates: start: 20141130

REACTIONS (3)
  - Skin lesion [Recovering/Resolving]
  - Eczema vesicular [Recovering/Resolving]
  - Erythema [Recovering/Resolving]

NARRATIVE: CASE EVENT DATE: 20141201
